FAERS Safety Report 7038475-4 (Version None)
Quarter: 2010Q4

REPORT INFORMATION
  Report Type: 
  Country: None (occurrence: None)
  Receive Date: 20101011
  Receipt Date: 20100422
  Transmission Date: 20110411
  Serious: Yes (Other)
  Sender: FDA-Public Use
  Company Number: US-PFIZER INC-2010051870

PATIENT
  Sex: Female

DRUGS (3)
  1. NEURONTIN [Suspect]
     Indication: DIABETIC NEUROPATHY
     Dosage: UNK
     Dates: start: 20091101
  2. NEURONTIN [Suspect]
     Indication: NEURODEGENERATIVE DISORDER
  3. NEURONTIN [Suspect]
     Indication: SPINAL COLUMN STENOSIS

REACTIONS (2)
  - HYPERPHAGIA [None]
  - WEIGHT INCREASED [None]
